FAERS Safety Report 18506808 (Version 1)
Quarter: 2020Q4

REPORT INFORMATION
  Report Type: Report from Study
  Country: DE (occurrence: DE)
  Receive Date: 20201116
  Receipt Date: 20201116
  Transmission Date: 20210114
  Serious: Yes (Hospitalization, Other)
  Sender: FDA-Public Use
  Company Number: DE-B.I. PHARMACEUTICALS,INC./RIDGEFIELD-2018-12-003943

PATIENT
  Age: 76 Year
  Sex: Male
  Weight: 93 kg

DRUGS (25)
  1. BISOPROLOL [Concomitant]
     Active Substance: BISOPROLOL
     Indication: PRODUCT USED FOR UNKNOWN INDICATION
     Route: 048
  2. OFEV [Suspect]
     Active Substance: NINTEDANIB
     Indication: IDIOPATHIC PULMONARY FIBROSIS
     Dosage: REACTION: DIARRHOEA, NAUSEA?2X100
     Route: 048
     Dates: start: 20180718, end: 20180906
  3. ESBRIET [Suspect]
     Active Substance: PIRFENIDONE
     Dosage: 0.33DAY
     Route: 048
     Dates: start: 20181013
  4. CLEXANE [Concomitant]
     Active Substance: ENOXAPARIN SODIUM
     Route: 065
     Dates: start: 20181129, end: 20181206
  5. SPIRIVA [Concomitant]
     Active Substance: TIOTROPIUM BROMIDE MONOHYDRATE
     Indication: PRODUCT USED FOR UNKNOWN INDICATION
     Dosage: 2 STROKES
     Route: 055
  6. TORASEMID [Concomitant]
     Active Substance: TORSEMIDE
     Indication: PRODUCT USED FOR UNKNOWN INDICATION
     Dosage: 2-1-0?1 IN 0.33 DAY
  7. ENALAPRIL [Concomitant]
     Active Substance: ENALAPRIL
     Indication: PRODUCT USED FOR UNKNOWN INDICATION
     Dosage: 20 MG-0-10 MG
     Route: 048
  8. OXYGEN. [Concomitant]
     Active Substance: OXYGEN
     Indication: PRODUCT USED FOR UNKNOWN INDICATION
     Dosage: 24 H AT 3 L/MIN
     Route: 065
  9. FALITHROM [Suspect]
     Active Substance: PHENPROCOUMON
     Dosage: DOSAGE DEPENS ON INR VALUE
     Route: 048
     Dates: start: 1997
  10. ALLOPURINOL. [Concomitant]
     Active Substance: ALLOPURINOL
     Indication: PRODUCT USED FOR UNKNOWN INDICATION
     Dosage: 0-0-1
     Route: 048
  11. PALEXIA [Concomitant]
     Active Substance: TAPENTADOL HYDROCHLORIDE
     Indication: PRODUCT USED FOR UNKNOWN INDICATION
     Dosage: 1-0-1
  12. HEPARIN [Concomitant]
     Active Substance: HEPARIN SODIUM
     Indication: PRODUCT USED FOR UNKNOWN INDICATION
     Dosage: AS REQUIRED?IF INR IS LESS THAN 2 FREQUENCY:
     Route: 065
  13. CLEXANE [Concomitant]
     Active Substance: ENOXAPARIN SODIUM
     Indication: PRODUCT USED FOR UNKNOWN INDICATION
     Route: 065
     Dates: start: 20190120, end: 20190130
  14. INEGY [Concomitant]
     Active Substance: EZETIMIBE\SIMVASTATIN
     Dosage: 10/40 MG, 0-0-1
  15. NOVAMINSULFON [Concomitant]
     Active Substance: METAMIZOLE
     Indication: PRODUCT USED FOR UNKNOWN INDICATION
     Dosage: AS REQUIRED
  16. SIMVASTATIN. [Concomitant]
     Active Substance: SIMVASTATIN
     Indication: PRODUCT USED FOR UNKNOWN INDICATION
     Route: 048
  17. SPIRIVA [Concomitant]
     Active Substance: TIOTROPIUM BROMIDE MONOHYDRATE
     Dosage: 2 STROKES
     Route: 055
  18. FALITHROM [Suspect]
     Active Substance: PHENPROCOUMON
     Indication: IDIOPATHIC PULMONARY FIBROSIS
     Dosage: DOSAGE DEPENDS ON INR VALUE
     Route: 048
  19. FALITHROM [Suspect]
     Active Substance: PHENPROCOUMON
     Dosage: DOSAGE DEPENDING ON VALUE
     Route: 065
  20. INEGY [Concomitant]
     Active Substance: EZETIMIBE\SIMVASTATIN
     Indication: PRODUCT USED FOR UNKNOWN INDICATION
     Dosage: 2 STROKES
     Route: 065
  21. ENALAPRIL [Concomitant]
     Active Substance: ENALAPRIL
     Dosage: 1-0-0.5
     Route: 048
  22. ESBRIET [Suspect]
     Active Substance: PIRFENIDONE
     Indication: IDIOPATHIC PULMONARY FIBROSIS
     Dosage: 534 MG?1 IN 0.33 DAY
     Route: 048
     Dates: start: 20180908
  23. CONCOR [Concomitant]
     Active Substance: BISOPROLOL FUMARATE
     Indication: PRODUCT USED FOR UNKNOWN INDICATION
     Dosage: 1-0-0
  24. HEPARIN [Concomitant]
     Active Substance: HEPARIN SODIUM
     Dosage: AS REQUIRED FREQUENCY:
  25. OXYGEN. [Concomitant]
     Active Substance: OXYGEN
     Dosage: AT LEAST 16 HOURS WITH 2.5 L/MIN

REACTIONS (24)
  - Pulmonary oedema [Recovered/Resolved]
  - Constipation [Recovering/Resolving]
  - Drug interaction [Unknown]
  - Dry mouth [Not Recovered/Not Resolved]
  - Diarrhoea [Recovered/Resolved]
  - Dysgeusia [Not Recovered/Not Resolved]
  - Decreased appetite [Not Recovered/Not Resolved]
  - International normalised ratio fluctuation [Recovering/Resolving]
  - Haemorrhage [Recovered/Resolved]
  - Nausea [Recovering/Resolving]
  - Dysphagia [Not Recovered/Not Resolved]
  - Post procedural haemorrhage [Recovered/Resolved]
  - Procedural pain [Not Recovered/Not Resolved]
  - Abdominal distension [Recovered/Resolved]
  - Suspected COVID-19 [Recovering/Resolving]
  - Fatigue [Not Recovered/Not Resolved]
  - Dyspnoea [Not Recovered/Not Resolved]
  - Product dose omission issue [Unknown]
  - Food poisoning [Recovering/Resolving]
  - Basal cell carcinoma [Not Recovered/Not Resolved]
  - Catheter site pain [Recovered/Resolved]
  - Secretion discharge [Not Recovered/Not Resolved]
  - Skin cancer [Not Recovered/Not Resolved]
  - Mobility decreased [Not Recovered/Not Resolved]

NARRATIVE: CASE EVENT DATE: 20180801
